FAERS Safety Report 4551007-5 (Version None)
Quarter: 2005Q1

REPORT INFORMATION
  Report Type: 
  Country: None (occurrence: None)
  Receive Date: 20050113
  Receipt Date: 20040406
  Transmission Date: 20050727
  Serious: No
  Sender: FDA-Public Use
  Company Number: US-BRISTOL-MYERS SQUIBB COMPANY-12554374

PATIENT
  Sex: Male

DRUGS (1)
  1. CARDIOLITE [Suspect]
     Indication: CARDIAC PHARMACOLOGIC STRESS TEST

REACTIONS (1)
  - NAUSEA [None]
